FAERS Safety Report 6838485-3 (Version None)
Quarter: 2010Q3

REPORT INFORMATION
  Report Type: 
  Country: None (occurrence: None)
  Receive Date: 20100713
  Receipt Date: 20070611
  Transmission Date: 20110219
  Serious: No
  Sender: FDA-Public Use
  Company Number: US-PFIZER INC-2007049620

PATIENT
  Sex: Female
  Weight: 50 kg

DRUGS (2)
  1. CHANTIX [Suspect]
     Indication: SMOKING CESSATION THERAPY
     Dates: start: 20070501
  2. ALBUTEROL [Concomitant]
     Indication: ASTHMA

REACTIONS (5)
  - ASTHENIA [None]
  - FATIGUE [None]
  - NAUSEA [None]
  - TREMOR [None]
  - VOMITING [None]
